FAERS Safety Report 5329873-5 (Version None)
Quarter: 2007Q2

REPORT INFORMATION
  Report Type: 
  Country: None (occurrence: None)
  Receive Date: 20070517
  Receipt Date: 20070517
  Transmission Date: 20071010
  Serious: Yes (Hospitalization)
  Sender: FDA-Public Use
  Company Number: None

PATIENT
  Sex: Male
  Weight: 98 kg

DRUGS (19)
  1. CARBOPLATIN [Suspect]
     Dosage: 575 MG
  2. ALIMTA [Suspect]
     Dosage: 1110 MG
  3. ALBUTEROL SULFATE AND IPRATROPIUM BROMIDE [Concomitant]
  4. CLONIDINE [Concomitant]
  5. CODEINE/GUAIFENESIN [Concomitant]
  6. CYANOCOBALAMIN [Concomitant]
  7. DEXAMETHASONE 0.5MG TAB [Concomitant]
  8. FOLIC ACID [Concomitant]
  9. FORMOTEROL FUMARATE [Concomitant]
  10. HYDROCHLOROTHIAZIDE [Concomitant]
  11. LISINOPRIL [Concomitant]
  12. MAG-OX [Concomitant]
  13. MOMETASONE FUROATE [Concomitant]
  14. OMEPRAZOLE [Concomitant]
  15. PAROXETINE HYDROCHLORIDE [Concomitant]
  16. POTASSIUM CHLORIDE [Concomitant]
  17. PROCHLORPERAZINE [Concomitant]
  18. SIMVASTATIN [Concomitant]
  19. VERAPAMIL [Concomitant]

REACTIONS (7)
  - BONE MARROW FAILURE [None]
  - DEHYDRATION [None]
  - DIARRHOEA [None]
  - INTESTINAL DILATATION [None]
  - LABORATORY TEST INTERFERENCE [None]
  - NEUTROPENIA [None]
  - STREPTOCOCCAL INFECTION [None]
